FAERS Safety Report 7583072-5 (Version None)
Quarter: 2011Q2

REPORT INFORMATION
  Report Type: 
  Country: None (occurrence: None)
  Receive Date: 20110630
  Receipt Date: 20110628
  Transmission Date: 20111010
  Serious: Yes (Hospitalization)
  Sender: FDA-Public Use
  Company Number: US-BRISTOL-MYERS SQUIBB COMPANY-15859986

PATIENT
  Age: 34 Year
  Sex: Male

DRUGS (8)
  1. WARFARIN SODIUM [Suspect]
     Indication: CARDIAC FIBRILLATION
     Dates: start: 20070101
  2. AMIODARONE HCL [Concomitant]
  3. METOLAZONE [Concomitant]
  4. CYMBALTA [Concomitant]
  5. METOPROLOL TARTRATE [Concomitant]
  6. LISINOPRIL [Concomitant]
  7. FUROSEMIDE [Concomitant]
  8. WARFARIN SODIUM [Suspect]
     Indication: CARDIAC MURMUR
     Dates: start: 20070101

REACTIONS (1)
  - MYOCARDIAL INFARCTION [None]
